FAERS Safety Report 7158258-4 (Version None)
Quarter: 2010Q4

REPORT INFORMATION
  Report Type: 
  Country: None (occurrence: None)
  Receive Date: 20101214
  Receipt Date: 20100401
  Transmission Date: 20110411
  Serious: No
  Sender: FDA-Public Use
  Company Number: US-ASTRAZENECA-2010SE14423

PATIENT
  Sex: Male
  Weight: 83.9 kg

DRUGS (4)
  1. CRESTOR [Suspect]
     Indication: HIGH DENSITY LIPOPROTEIN DECREASED
     Route: 048
  2. CLOZAPAM [Concomitant]
     Indication: ANXIETY
  3. FLOMAX [Concomitant]
     Indication: PROSTATIC DISORDER
  4. ASPIRIN [Concomitant]
     Indication: PROPHYLAXIS

REACTIONS (1)
  - PAIN [None]
